FAERS Safety Report 12773026 (Version 1)
Quarter: 2016Q3

REPORT INFORMATION
  Report Type: Spontaneous
  Country: US (occurrence: US)
  Receive Date: 20160922
  Receipt Date: 20160922
  Transmission Date: 20161109
  Serious: No
  Sender: FDA-Public Use
  Company Number: US-BION-20160031

PATIENT
  Age: 68 Year
  Sex: Female
  Weight: 117.93 kg

DRUGS (2)
  1. ZYRTEC [Suspect]
     Active Substance: CETIRIZINE HYDROCHLORIDE
     Indication: MULTIPLE ALLERGIES
     Route: 048
  2. DICLOSINAC (SIC) [Concomitant]
     Indication: ARTHRITIS

REACTIONS (1)
  - Drug ineffective [Unknown]
